FAERS Safety Report 15960222 (Version 1)
Quarter: 2019Q1

REPORT INFORMATION
  Report Type: Spontaneous
  Country: US (occurrence: US)
  Receive Date: 20190214
  Receipt Date: 20190214
  Transmission Date: 20190417
  Serious: No
  Sender: FDA-Public Use
  Company Number: US-ROCHE-2190144

PATIENT
  Sex: Male

DRUGS (9)
  1. ERIVEDGE [Suspect]
     Active Substance: VISMODEGIB
     Indication: SKIN CANCER
     Route: 048
  2. WARFARIN [Concomitant]
     Active Substance: WARFARIN
  3. LOSARTAN. [Concomitant]
     Active Substance: LOSARTAN
  4. TESTOSTERONE. [Concomitant]
     Active Substance: TESTOSTERONE
  5. FENOFIBRATE. [Concomitant]
     Active Substance: FENOFIBRATE
  6. SIROLIMUS. [Concomitant]
     Active Substance: SIROLIMUS
  7. MYCOPHENOLATE [Concomitant]
     Active Substance: MYCOPHENOLIC ACID
  8. ASPIR 81 [Concomitant]
     Active Substance: ASPIRIN
  9. EZETIMIBE. [Concomitant]
     Active Substance: EZETIMIBE

REACTIONS (3)
  - Muscle spasms [Unknown]
  - Dysgeusia [Unknown]
  - Alopecia [Unknown]
